FAERS Safety Report 7372855-2 (Version None)
Quarter: 2011Q1

REPORT INFORMATION
  Report Type: 
  Country: None (occurrence: None)
  Receive Date: 20110324
  Receipt Date: 20110323
  Transmission Date: 20110831
  Serious: Yes (Other)
  Sender: FDA-Public Use
  Company Number: IT-PFIZER INC-2011065484

PATIENT
  Age: 79 Year
  Sex: Male

DRUGS (4)
  1. BIFRIL [Concomitant]
     Indication: HYPERTENSION
  2. ALLOPURINOL [Concomitant]
  3. HALCION [Suspect]
     Indication: AGITATION
     Dosage: 250 UG, 2X/DAY
     Route: 048
     Dates: start: 20110321, end: 20110321
  4. ASPIRIN [Concomitant]

REACTIONS (2)
  - SEDATION [None]
  - APHASIA [None]
